FAERS Safety Report 5069220-X (Version None)
Quarter: 2006Q3

REPORT INFORMATION
  Report Type: 
  Country: None (occurrence: None)
  Receive Date: 20060803
  Receipt Date: 20060724
  Transmission Date: 20061208
  Serious: Yes (Life-Threatening, Hospitalization)
  Sender: FDA-Public Use
  Company Number: CZ-JNJFOC-20040703672

PATIENT
  Sex: Female

DRUGS (8)
  1. REMICADE [Suspect]
     Route: 042
  2. REMICADE [Suspect]
     Indication: RHEUMATOID ARTHRITIS
     Route: 042
  3. METHOTREXATE [Concomitant]
     Route: 048
  4. MOVALIS [Concomitant]
     Route: 048
  5. AC. FOLICUM [Concomitant]
     Route: 048
  6. CITALEC [Concomitant]
  7. SANDIMMUNE [Concomitant]
  8. MEDROL [Concomitant]

REACTIONS (6)
  - ANAPHYLACTIC REACTION [None]
  - BRONCHOSPASM [None]
  - DERMATITIS BULLOUS [None]
  - FACE OEDEMA [None]
  - TACHYCARDIA [None]
  - URTICARIA [None]
